FAERS Safety Report 15230991 (Version 1)
Quarter: 2018Q3

REPORT INFORMATION
  Report Type: Spontaneous
  Country: US (occurrence: US)
  Receive Date: 20180802
  Receipt Date: 20180802
  Transmission Date: 20181010
  Serious: Yes (Other)
  Sender: FDA-Public Use
  Company Number: US-ACCORD-063609

PATIENT
  Age: 57 Year
  Sex: Female
  Weight: 81.65 kg

DRUGS (22)
  1. ERGOCALCIFEROL/RETINOL [Concomitant]
     Route: 048
  2. NIFEDIPINE. [Concomitant]
     Active Substance: NIFEDIPINE
     Dates: start: 20050101
  3. ASPIR?81 [Concomitant]
     Active Substance: ASPIRIN
     Dosage: STRENGTH: 81 MG?TAKE 1 PO DAILY
     Route: 048
  4. NORCO [Concomitant]
     Active Substance: ACETAMINOPHEN\HYDROCODONE BITARTRATE
     Indication: PAIN
     Dosage: STRENGTH: 10 MG?325 MG?TAKE 1 PO Q4H PRN
     Route: 048
  5. CYTOXAN [Suspect]
     Active Substance: CYCLOPHOSPHAMIDE
     Indication: BREAST CANCER STAGE II
     Dosage: 1060 MG EACH TIME
     Dates: start: 20120717, end: 20120918
  6. DEXAMETHASONE. [Concomitant]
     Active Substance: DEXAMETHASONE
     Dosage: STRENGTH: 4 MG?TAKE 2 PO BID
     Route: 048
  7. FAMOTIDINE. [Concomitant]
     Active Substance: FAMOTIDINE
     Dosage: STRENGTH: 20 MG?TAKE 1 PO BID
     Route: 048
  8. SENOKOT [Concomitant]
     Active Substance: SENNOSIDES
     Dosage: STRENGTH: 8.6 MG?TAKE 1 PO DAILY
     Route: 048
  9. DIOVAN HCT [Concomitant]
     Active Substance: HYDROCHLOROTHIAZIDE\VALSARTAN
     Dosage: STRENGTH: 80?12.5 MG?TAKE 1 PO DAILY
     Route: 048
  10. PALONOSETRON/PALONOSETRON HYDROCHLORIDE [Concomitant]
  11. DIOVAN [Concomitant]
     Active Substance: VALSARTAN
     Route: 048
  12. PROCHLORPERAZINE. [Concomitant]
     Active Substance: PROCHLORPERAZINE
     Indication: NAUSEA
     Dosage: STRENGTH: 10 MG?TAKE 1 PO Q6H PRN
     Route: 048
  13. ZOFRAN [Concomitant]
     Active Substance: ONDANSETRON HYDROCHLORIDE
     Indication: NAUSEA
     Dosage: STRENGTH: 8 MG?TAKE 1 PO Q8H PRN
     Route: 048
  14. DIPHENHYDRAMINE. [Concomitant]
     Active Substance: DIPHENHYDRAMINE
  15. EMLA [Concomitant]
     Active Substance: LIDOCAINE\PRILOCAINE
     Dosage: STRENGTH: 2.5?2.5%
     Route: 061
  16. PROCARDIA XL [Concomitant]
     Active Substance: NIFEDIPINE
     Dosage: STRENGTH: 30 MG?TAKE 1 PO DAILY
     Route: 048
  17. LEVOFLOXACIN/LEVOFLOXACIN MESYLATE [Concomitant]
     Dosage: STRENGTH: 500 MG?TAKE 1 PO DAILY
     Route: 048
  18. DOCETAXEL ACCORD [Suspect]
     Active Substance: DOCETAXEL
     Indication: BREAST CANCER STAGE II
     Dosage: 130 MG EACH TIME
     Dates: start: 20120717, end: 20120918
  19. SOMA [Concomitant]
     Active Substance: CARISOPRODOL
     Dosage: STRENGTH: 350 MG?TAKE 1 PO TID
     Route: 048
  20. VALSARTAN. [Concomitant]
     Active Substance: VALSARTAN
     Dates: start: 20050101
  21. IRON [Concomitant]
     Active Substance: IRON
     Route: 048
  22. SEROQUEL [Concomitant]
     Active Substance: QUETIAPINE FUMARATE
     Dosage: STRENGTH: 50 MG?TAKE 1 PO DAILY
     Route: 048

REACTIONS (1)
  - Alopecia [Not Recovered/Not Resolved]

NARRATIVE: CASE EVENT DATE: 20130318
